FAERS Safety Report 18506318 (Version 1)
Quarter: 2020Q4

REPORT INFORMATION
  Report Type: Spontaneous
  Country: US (occurrence: US)
  Receive Date: 20201115
  Receipt Date: 20201115
  Transmission Date: 20210114
  Serious: No
  Sender: FDA-Public Use
  Company Number: None

PATIENT
  Age: 75 Year
  Sex: Female
  Weight: 74.1 kg

DRUGS (4)
  1. BARICITINIB. [Concomitant]
     Active Substance: BARICITINIB
     Dates: start: 20201112, end: 20201114
  2. PLACEBO [Concomitant]
     Active Substance: UNSPECIFIED INGREDIENT
     Dates: start: 20201112, end: 20201114
  3. REMDESIVIR. [Suspect]
     Active Substance: REMDESIVIR
     Dates: start: 20201111, end: 20201114
  4. REMDESIVIR. [Suspect]
     Active Substance: REMDESIVIR
     Indication: COVID-19 PNEUMONIA
     Route: 042
     Dates: start: 20201111, end: 20201114

REACTIONS (3)
  - Aspartate aminotransferase increased [None]
  - Transaminases increased [None]
  - Alanine aminotransferase increased [None]

NARRATIVE: CASE EVENT DATE: 20201114
